FAERS Safety Report 20293544 (Version 1)
Quarter: 2022Q1

REPORT INFORMATION
  Report Type: Spontaneous
  Country: US (occurrence: US)
  Receive Date: 20220104
  Receipt Date: 20220104
  Transmission Date: 20220423
  Serious: Yes (Hospitalization)
  Sender: FDA-Public Use
  Company Number: US-SA-SAC20220102000319

PATIENT
  Age: 60 Year
  Sex: Male

DRUGS (10)
  1. DUPIXENT [Suspect]
     Active Substance: DUPILUMAB
     Indication: Asthma
     Dosage: 300 MG, QOW
     Route: 058
  2. DUPIXENT [Suspect]
     Active Substance: DUPILUMAB
     Indication: Immunodeficiency
  3. DUPIXENT [Suspect]
     Active Substance: DUPILUMAB
     Indication: Hypogammaglobulinaemia
  4. EPINEPHRINE [Concomitant]
     Active Substance: EPINEPHRINE
  5. DIPHENHYDRAMINE [Concomitant]
     Active Substance: DIPHENHYDRAMINE
  6. GAMMAGARD [Concomitant]
     Active Substance: HUMAN IMMUNOGLOBULIN G
  7. PREDNISONE [Concomitant]
     Active Substance: PREDNISONE
  8. BENZONATATE [Concomitant]
     Active Substance: BENZONATATE
  9. TEMAZEPAM [Concomitant]
     Active Substance: TEMAZEPAM
  10. PROAIR HFA [Concomitant]
     Active Substance: ALBUTEROL SULFATE

REACTIONS (2)
  - COVID-19 [Unknown]
  - Product use in unapproved indication [Unknown]

NARRATIVE: CASE EVENT DATE: 20211205
